FAERS Safety Report 5688744-5 (Version None)
Quarter: 2008Q1

REPORT INFORMATION
  Report Type: 
  Country: None (occurrence: None)
  Receive Date: 20080331
  Receipt Date: 20080324
  Transmission Date: 20080703
  Serious: Yes (Hospitalization)
  Sender: FDA-Public Use
  Company Number: JP-MERCK-0803USA03963

PATIENT
  Age: 80 Year
  Sex: Female

DRUGS (10)
  1. HYZAAR [Suspect]
     Indication: HYPERTENSION
     Route: 048
     Dates: start: 20070904, end: 20070907
  2. HYZAAR [Suspect]
     Route: 048
     Dates: start: 20070822, end: 20070903
  3. HYZAAR [Suspect]
     Route: 048
     Dates: start: 20070911, end: 20070911
  4. PANALDINE [Concomitant]
     Route: 048
  5. NORVASC [Concomitant]
     Route: 048
  6. OPALMON [Concomitant]
     Route: 048
  7. KETOPROFEN [Concomitant]
     Route: 061
  8. RASTINON [Concomitant]
     Route: 048
  9. CARDENALIN [Concomitant]
     Route: 048
  10. ZOLPIDEM TARTRATE [Concomitant]
     Route: 048

REACTIONS (4)
  - DEHYDRATION [None]
  - HYPOTENSION [None]
  - OVERDOSE [None]
  - RHABDOMYOLYSIS [None]
